FAERS Safety Report 25840051 (Version 1)
Quarter: 2025Q3

REPORT INFORMATION
  Report Type: Spontaneous
  Country: CN (occurrence: CN)
  Receive Date: 20250924
  Receipt Date: 20250924
  Transmission Date: 20251021
  Serious: Yes (Other)
  Sender: Kenvue
  Company Number: CN-KENVUE-20250909793

PATIENT

DRUGS (12)
  1. ACETAMINOPHEN [Suspect]
     Active Substance: ACETAMINOPHEN
     Indication: Pyrexia
     Dosage: 1 DOSAGE FORM, ONCE A DAY
     Route: 048
     Dates: start: 20250906
  2. ACETAMINOPHEN\CHLORPHENIRAMINE\DEXTROMETHORPHAN\PSEUDOEPHEDRINE [Suspect]
     Active Substance: ACETAMINOPHEN\CHLORPHENIRAMINE\DEXTROMETHORPHAN\PSEUDOEPHEDRINE
     Indication: Pyrexia
     Dosage: 1 DOSAGE FORM, ONCE A DAY
     Route: 048
     Dates: start: 20250906
  3. CODEINE PHOSPHATE\IBUPROFEN [Suspect]
     Active Substance: CODEINE PHOSPHATE\IBUPROFEN
     Indication: Coccydynia
     Dosage: 2 DOSAGE FORM, THRICE A DAY
     Route: 048
     Dates: start: 20250903
  4. HERBALS\SALVIA MILTIORRHIZA ROOT [Suspect]
     Active Substance: HERBALS\SALVIA MILTIORRHIZA ROOT
     Indication: Antibiotic therapy
     Dosage: 4 DOSAGE FORM, THRICE A DAY
     Route: 048
     Dates: start: 20250903
  5. PARECOXIB SODIUM [Suspect]
     Active Substance: PARECOXIB SODIUM
     Indication: Wound complication
     Dosage: 40 MILLIGRAM, ONCE A DAY, ST
     Route: 030
     Dates: start: 20250907
  6. PARECOXIB SODIUM [Suspect]
     Active Substance: PARECOXIB SODIUM
     Indication: Coccydynia
  7. LYSINE ACETYLSALICYLATE [Suspect]
     Active Substance: ASPIRIN DL-LYSINE
     Indication: Pyrexia
     Dosage: 0.9 GRAM, ONCE A DAY, ST
     Route: 030
     Dates: start: 20250907
  8. LYSINE ACETYLSALICYLATE [Suspect]
     Active Substance: ASPIRIN DL-LYSINE
     Indication: Wound complication
  9. SODIUM CHLORIDE [Suspect]
     Active Substance: SODIUM CHLORIDE
     Indication: Wound complication
     Route: 042
     Dates: start: 20250907
  10. HERBALS [Suspect]
     Active Substance: HERBALS
     Indication: Faecal disimpaction
     Dosage: 2 DOSAGE FORM, THRICE A DAY
     Route: 048
     Dates: start: 20250904
  11. HERBALS [Suspect]
     Active Substance: HERBALS
     Indication: Constipation
  12. POLYETHYLENE GLYCOL 4000 [Suspect]
     Active Substance: POLYETHYLENE GLYCOL 4000
     Indication: Constipation
     Dosage: 10 GRAM, TWICE A DAY (1 SACHET)
     Route: 048
     Dates: start: 20250908

REACTIONS (2)
  - Off label use [Unknown]
  - Rash [Recovering/Resolving]

NARRATIVE: CASE EVENT DATE: 20250906
